FAERS Safety Report 8228108-3 (Version None)
Quarter: 2012Q1

REPORT INFORMATION
  Report Type: 
  Country: None (occurrence: None)
  Receive Date: 20120322
  Receipt Date: 20111227
  Transmission Date: 20120608
  Serious: Yes (Other)
  Sender: FDA-Public Use
  Company Number: US-BRISTOL-MYERS SQUIBB COMPANY-16312209

PATIENT
  Age: 83 Year
  Sex: Male

DRUGS (1)
  1. ERBITUX [Suspect]
     Dosage: NO OF DOSE:1
     Dates: start: 20110101, end: 20110101

REACTIONS (1)
  - INFUSION RELATED REACTION [None]
